FAERS Safety Report 10309927 (Version 1)
Quarter: 2014Q3

REPORT INFORMATION
  Report Type: Spontaneous
  Country: US (occurrence: None)
  Receive Date: 20140715
  Receipt Date: 20140715
  Transmission Date: 20150326
  Serious: Yes (Other)
  Sender: FDA-Public Use
  Company Number: None

PATIENT
  Age: 9 Month
  Sex: Male

DRUGS (1)
  1. CLOTRIMAZOLE AND BETAMETHASONE DIPROPIONATE [Suspect]
     Active Substance: BETAMETHASONE\BETAMETHASONE DIPROPIONATE\CLOTRIMAZOLE
     Indication: SEBORRHOEIC DERMATITIS
     Dosage: 45MG?2WEEKS?CREAM USED TO RUB(PLACED) ON SKIN
     Route: 061
     Dates: start: 20070826, end: 20070904

REACTIONS (2)
  - Seborrhoeic dermatitis [None]
  - Condition aggravated [None]

NARRATIVE: CASE EVENT DATE: 200707
